FAERS Safety Report 7799993-4 (Version None)
Quarter: 2011Q4

REPORT INFORMATION
  Report Type: 
  Country: None (occurrence: None)
  Receive Date: 20111006
  Receipt Date: 20110920
  Transmission Date: 20120403
  Serious: Yes (Hospitalization)
  Sender: FDA-Public Use
  Company Number: US-ROCHE-752063

PATIENT
  Sex: Female

DRUGS (2)
  1. TARCEVA [Suspect]
     Indication: LUNG NEOPLASM MALIGNANT
     Dosage: FREQUENCY DAILY
     Route: 048
  2. TARCEVA [Suspect]
     Dosage: FREQUENCY: DAILY
     Route: 048

REACTIONS (9)
  - OCULAR HYPERAEMIA [None]
  - FAECES DISCOLOURED [None]
  - PERIPHERAL EMBOLISM [None]
  - PRURITUS [None]
  - GASTRIC ULCER [None]
  - RASH [None]
  - DRY SKIN [None]
  - MUCOSAL INFLAMMATION [None]
  - PULMONARY EMBOLISM [None]
